FAERS Safety Report 5897465-5 (Version None)
Quarter: 2008Q3

REPORT INFORMATION
  Report Type: 
  Country: None (occurrence: None)
  Receive Date: 20080917
  Receipt Date: 20071019
  Transmission Date: 20090109
  Serious: Yes (Other)
  Sender: FDA-Public Use
  Company Number: PHEH2007US13870

PATIENT
  Sex: Female

DRUGS (2)
  1. FEMARA [Suspect]
     Indication: BREAST CANCER METASTATIC
     Dosage: 2.5 MG, QD, ORAL
     Route: 048
  2. ANALGESICS (NO INGREDIENTS/SUBSTANCES) [Concomitant]

REACTIONS (1)
  - BLOOD BILIRUBIN INCREASED [None]
